FAERS Safety Report 5514627-7 (Version None)
Quarter: 2007Q4

REPORT INFORMATION
  Report Type: 
  Country: None (occurrence: None)
  Receive Date: 20071113
  Receipt Date: 20071103
  Transmission Date: 20080405
  Serious: Yes (Other)
  Sender: FDA-Public Use
  Company Number: US-PFIZER INC-2007070061

PATIENT
  Sex: Female
  Weight: 62.1 kg

DRUGS (13)
  1. REVATIO [Suspect]
     Indication: PULMONARY HYPERTENSION
     Route: 048
  2. OXYGEN [Concomitant]
  3. CYANOCOBALAMIN [Concomitant]
  4. ACETYLSALICYLIC ACID SRT [Concomitant]
  5. LIPITOR [Concomitant]
  6. DARVOCET [Concomitant]
  7. THYROID TAB [Concomitant]
  8. ALTACE [Concomitant]
  9. COUMADIN [Concomitant]
  10. NORVASC [Concomitant]
  11. LASIX [Concomitant]
  12. POTASSIUM CHLORIDE [Concomitant]
  13. TOPROL-XL [Concomitant]

REACTIONS (3)
  - BLINDNESS [None]
  - DYSPNOEA [None]
  - MACULAR DEGENERATION [None]
